FAERS Safety Report 20954236 (Version 4)
Quarter: 2022Q3

REPORT INFORMATION
  Report Type: Spontaneous
  Country: US (occurrence: US)
  Receive Date: 20220614
  Receipt Date: 20220823
  Transmission Date: 20221027
  Serious: No
  Sender: FDA-Public Use
  Company Number: US-BoehringerIngelheim-2022-BI-163292

PATIENT
  Age: 72 Year
  Sex: Male

DRUGS (2)
  1. OFEV [Suspect]
     Active Substance: NINTEDANIB
     Indication: Product used for unknown indication
  2. OFEV [Suspect]
     Active Substance: NINTEDANIB

REACTIONS (6)
  - Diarrhoea [Unknown]
  - Diarrhoea [Unknown]
  - Cough [Unknown]
  - Intentional product use issue [Unknown]
  - Cardiac disorder [Unknown]
  - COVID-19 [Not Recovered/Not Resolved]

NARRATIVE: CASE EVENT DATE: 20210801
